FAERS Safety Report 14194314 (Version 4)
Quarter: 2018Q4

REPORT INFORMATION
  Report Type: Spontaneous
  Country: US (occurrence: US)
  Receive Date: 20171116
  Receipt Date: 20181105
  Transmission Date: 20190204
  Serious: Yes (Hospitalization, Other)
  Sender: FDA-Public Use
  Company Number: US-PFIZER INC-2017488921

PATIENT
  Age: 56 Year
  Sex: Female

DRUGS (2)
  1. XELJANZ XR [Suspect]
     Active Substance: TOFACITINIB CITRATE
     Indication: RHEUMATOID ARTHRITIS
     Dosage: 11 MG, 1X/DAY
     Route: 048
     Dates: start: 20171028
  2. XELJANZ XR [Suspect]
     Active Substance: TOFACITINIB CITRATE
     Dosage: 11 MG, 1X/DAY
     Route: 048
     Dates: start: 201711, end: 20180801

REACTIONS (7)
  - Hypertension [Unknown]
  - Blood pressure abnormal [Recovered/Resolved]
  - Breast cancer [Unknown]
  - Abdominal pain upper [Not Recovered/Not Resolved]
  - Appendicitis [Unknown]
  - Nasopharyngitis [Unknown]
  - Product dose omission [Unknown]

NARRATIVE: CASE EVENT DATE: 201711
